FAERS Safety Report 9351319 (Version 1)
Quarter: 2013Q2

REPORT INFORMATION
  Report Type: Spontaneous
  Country: IT (occurrence: IT)
  Receive Date: 20130617
  Receipt Date: 20130617
  Transmission Date: 20140414
  Serious: Yes (Other)
  Sender: FDA-Public Use
  Company Number: PHHY2013IT059970

PATIENT
  Sex: Female

DRUGS (5)
  1. AZITHROMYCIN [Suspect]
     Indication: BRONCHITIS CHRONIC
     Dosage: 500 MG, QD
     Route: 048
     Dates: start: 20130524, end: 20130525
  2. BLOPRESS [Concomitant]
     Dosage: 16 MG, UNK
     Route: 048
  3. PLAQUENIL [Concomitant]
     Dosage: 200 MG, UNK
     Route: 048
  4. ATORVASTATINA [Concomitant]
     Dosage: 10 MG, UNK
     Route: 048
  5. IDEOS [Concomitant]
     Dosage: 1 OT, (POSOLOGIC UNIT)
     Route: 048

REACTIONS (4)
  - Hypertension [Recovering/Resolving]
  - Tachyarrhythmia [Recovering/Resolving]
  - Electrocardiogram QT prolonged [Recovering/Resolving]
  - Extrasystoles [Recovering/Resolving]
